FAERS Safety Report 9722921 (Version 1)
Quarter: 2013Q4

REPORT INFORMATION
  Report Type: Spontaneous
  Country: US (occurrence: None)
  Receive Date: 20131127
  Receipt Date: 20131127
  Transmission Date: 20140711
  Serious: No
  Sender: FDA-Public Use
  Company Number: None

PATIENT
  Age: 49 Year
  Sex: Female

DRUGS (4)
  1. STRIBILD [Suspect]
     Dates: start: 20130923
  2. VITAMIN D [Concomitant]
  3. FOSAMAX [Concomitant]
  4. PANTOPRAZOLE [Concomitant]

REACTIONS (2)
  - Product substitution issue [None]
  - Somnolence [None]
